FAERS Safety Report 6180176-9 (Version None)
Quarter: 2009Q2

REPORT INFORMATION
  Report Type: 
  Country: None (occurrence: None)
  Receive Date: 20090505
  Receipt Date: 20090429
  Transmission Date: 20091009
  Serious: Yes (Death)
  Sender: FDA-Public Use
  Company Number: US-GILEAD-2009-0021704

PATIENT
  Sex: Female

DRUGS (8)
  1. LETAIRIS [Suspect]
     Indication: PULMONARY ARTERIAL HYPERTENSION
     Route: 048
     Dates: start: 20080620, end: 20090406
  2. LETAIRIS [Suspect]
     Route: 048
     Dates: start: 20080423, end: 20080620
  3. METOCLOPRAMIDE HCL [Concomitant]
  4. COUMADIN [Concomitant]
  5. VERAPAMIL HCL [Concomitant]
  6. EFFEXOR [Concomitant]
  7. ZANTAC [Concomitant]
  8. NEXIUM [Concomitant]

REACTIONS (1)
  - PULMONARY ARTERIAL HYPERTENSION [None]
